FAERS Safety Report 19055603 (Version 2)
Quarter: 2021Q2

REPORT INFORMATION
  Report Type: Spontaneous
  Country: JP (occurrence: JP)
  Receive Date: 20210324
  Receipt Date: 20210412
  Transmission Date: 20210717
  Serious: Yes (Hospitalization)
  Sender: FDA-Public Use
  Company Number: JP-JNJFOC-20210342418

PATIENT

DRUGS (2)
  1. DUROTEP [Suspect]
     Active Substance: FENTANYL
     Dosage: 25MCG/HR
     Route: 062
  2. DUROTEP [Suspect]
     Active Substance: FENTANYL
     Indication: PAIN
     Dosage: 12.5MCG/HR
     Route: 062
     Dates: start: 202009

REACTIONS (2)
  - Femur fracture [Unknown]
  - Accident [Unknown]
